FAERS Safety Report 20296556 (Version 2)
Quarter: 2022Q1

REPORT INFORMATION
  Report Type: Report from Study
  Country: FR (occurrence: FR)
  Receive Date: 20220105
  Receipt Date: 20220113
  Transmission Date: 20220423
  Serious: Yes (Hospitalization)
  Sender: FDA-Public Use
  Company Number: FR-ABBVIE-22K-056-4220137-00

PATIENT
  Age: 37 Year
  Sex: Female

DRUGS (3)
  1. HUMIRA [Suspect]
     Active Substance: ADALIMUMAB
     Indication: Colitis ulcerative
     Dosage: ON WEEK 0
     Route: 058
     Dates: start: 20211221, end: 20211221
  2. FIVASA [Concomitant]
     Indication: Colitis ulcerative
  3. CORTISONE [Concomitant]
     Active Substance: CORTISONE
     Indication: Colitis ulcerative

REACTIONS (5)
  - Proctitis [Unknown]
  - Insomnia [Unknown]
  - Diarrhoea [Unknown]
  - Rectal haemorrhage [Unknown]
  - Pain [Unknown]

NARRATIVE: CASE EVENT DATE: 20210101
